FAERS Safety Report 21943024 (Version 2)
Quarter: 2023Q1

REPORT INFORMATION
  Report Type: Spontaneous
  Country: RO (occurrence: RO)
  Receive Date: 20230202
  Receipt Date: 20230215
  Transmission Date: 20230417
  Serious: Yes (Death)
  Sender: FDA-Public Use
  Company Number: RO-BIOGEN-2023BI01184937

PATIENT
  Sex: Male
  Weight: 22 kg

DRUGS (3)
  1. SPINRAZA [Suspect]
     Active Substance: NUSINERSEN
     Indication: Spinal muscular atrophy
     Route: 050
     Dates: start: 20191002, end: 20230106
  2. CALCIUM [Concomitant]
     Active Substance: CALCIUM
     Indication: Product used for unknown indication
     Route: 050
  3. VITAMIN D3 [Concomitant]
     Active Substance: CHOLECALCIFEROL
     Indication: Product used for unknown indication
     Route: 050

REACTIONS (3)
  - Respiratory tract infection viral [Fatal]
  - Gastroenteritis viral [Fatal]
  - Cardiopulmonary failure [Fatal]
